FAERS Safety Report 13794078 (Version 1)
Quarter: 2017Q3

REPORT INFORMATION
  Report Type: Spontaneous
  Country: FR (occurrence: FR)
  Receive Date: 20170726
  Receipt Date: 20170726
  Transmission Date: 20171127
  Serious: Yes (Death, Hospitalization, Other)
  Sender: FDA-Public Use
  Company Number: FR-BAXTER-2017BAX028443

PATIENT
  Age: 83 Year
  Sex: Male

DRUGS (25)
  1. UROMITEXAN 600 MG, COMPRIM? [Suspect]
     Active Substance: MESNA
     Indication: DRUG TOXICITY PROPHYLAXIS
     Dosage: 7TH LINE CHEMOTHERAPY
     Route: 065
     Dates: start: 20170504
  2. ACIDE FOLIQUE [Concomitant]
     Active Substance: FOLIC ACID
     Indication: VITAMIN SUPPLEMENTATION
     Dosage: BEFORE 2011
     Route: 048
  3. ENDOXAN 1000 MG, POUDRE POUR SOLUTION INJECTABLE [Suspect]
     Active Substance: CYCLOPHOSPHAMIDE
     Indication: PLASMA CELL MYELOMA
     Dosage: 7TH LINE CHEMOTHERAPY
     Route: 065
     Dates: start: 20170504
  4. DEXAMETHASONE. [Suspect]
     Active Substance: DEXAMETHASONE
     Indication: PREMEDICATION
     Dosage: 20MG/5ML, INJECTABLE SOLUTION IN AMPOULE
     Route: 040
     Dates: start: 20170523, end: 20170523
  5. KARDEGIC [Concomitant]
     Active Substance: ASPIRIN LYSINE
     Indication: CONDUCTION DISORDER
     Dosage: POWDER FOR ORAL SOLUTION IN BAGS
     Route: 048
     Dates: start: 2014
  6. ZELITREX [Concomitant]
     Active Substance: VALACYCLOVIR HYDROCHLORIDE
     Indication: ANTIVIRAL PROPHYLAXIS
     Dosage: BEFORE 2011
     Route: 048
  7. LANTUS [Concomitant]
     Active Substance: INSULIN GLARGINE
     Indication: TYPE 2 DIABETES MELLITUS
     Dosage: BEFORE 2011
     Route: 058
  8. ENDOXAN 1000 MG, POUDRE POUR SOLUTION INJECTABLE [Suspect]
     Active Substance: CYCLOPHOSPHAMIDE
     Dosage: INFUSION
     Route: 042
     Dates: start: 20170524, end: 20170524
  9. POLARAMINE [Suspect]
     Active Substance: DEXCHLORPHENIRAMINE MALEATE
     Indication: PREMEDICATION
     Dosage: 5MG/1ML INJECTABLE SOLUTION
     Route: 040
     Dates: start: 20170523, end: 20170523
  10. GALVUS [Concomitant]
     Active Substance: VILDAGLIPTIN
     Indication: TYPE 2 DIABETES MELLITUS
     Route: 048
  11. ZYLORIC [Concomitant]
     Active Substance: ALLOPURINOL
     Indication: HYPERURICAEMIA
     Route: 048
  12. FUROSEMIDE. [Concomitant]
     Active Substance: FUROSEMIDE
     Indication: HYPERTENSION
     Route: 048
  13. NOVONORM [Concomitant]
     Active Substance: REPAGLINIDE
     Indication: TYPE 2 DIABETES MELLITUS
     Dosage: BEFORE 2011
     Route: 048
  14. UROMITEXAN 600 MG, COMPRIM? [Suspect]
     Active Substance: MESNA
     Route: 048
     Dates: start: 20170524, end: 20170524
  15. DOLIPRANE [Suspect]
     Active Substance: ACETAMINOPHEN
     Indication: PREMEDICATION
     Dosage: ONCE UPON REQUEST
     Route: 048
     Dates: start: 20170523, end: 20170523
  16. CANDESARTAN CILEXETIL. [Concomitant]
     Active Substance: CANDESARTAN CILEXETIL
     Indication: HYPERTENSION
     Route: 048
  17. HYDROCHLOROTHIAZIDE. [Concomitant]
     Active Substance: HYDROCHLOROTHIAZIDE
     Indication: HYPERTENSION
     Route: 048
  18. MESNA EG [Suspect]
     Active Substance: MESNA
     Indication: DRUG TOXICITY PROPHYLAXIS
     Dosage: INJECTABLE SOLUTION FOR INFUSION
     Route: 042
     Dates: start: 20170524, end: 20170524
  19. LASILIX [Concomitant]
     Active Substance: FUROSEMIDE
     Indication: HYPERTENSION
     Route: 065
  20. CELLTOP 100 MG/5 ML, SOLUTION INJECTABLE POUR PERFUSION [Suspect]
     Active Substance: ETOPOSIDE
     Indication: PLASMA CELL MYELOMA
     Dosage: 7TH LINE CHEMOTHERAPY
     Route: 065
     Dates: start: 20170504
  21. DARZALEX [Suspect]
     Active Substance: DARATUMUMAB
     Indication: PLASMA CELL MYELOMA
     Dosage: INFUSION
     Route: 042
     Dates: start: 20170523, end: 20170523
  22. ETOPOSIDE MYLAN [Suspect]
     Active Substance: ETOPOSIDE
     Indication: PLASMA CELL MYELOMA
     Dosage: INFUSION
     Route: 042
     Dates: start: 20170524, end: 20170524
  23. BACTRIM [Concomitant]
     Active Substance: SULFAMETHOXAZOLE\TRIMETHOPRIM
     Indication: INFECTION PROPHYLAXIS
     Dosage: BEFORE 2011
     Route: 048
  24. FOLIC ACID. [Concomitant]
     Active Substance: FOLIC ACID
     Indication: VITAMIN SUPPLEMENTATION
     Route: 065
  25. COUMADINE [Concomitant]
     Active Substance: WARFARIN SODIUM
     Indication: CONDUCTION DISORDER
     Dosage: SCORED TABLET, STARTED BEFORE 2014
     Route: 048

REACTIONS (4)
  - Encephalopathy [Fatal]
  - Septic shock [Fatal]
  - Pancytopenia [Fatal]
  - Immunosuppression [Unknown]

NARRATIVE: CASE EVENT DATE: 20170526
